FAERS Safety Report 4770717-8 (Version None)
Quarter: 2005Q3

REPORT INFORMATION
  Report Type: 
  Country: None (occurrence: None)
  Receive Date: 20050914
  Receipt Date: 20050914
  Transmission Date: 20060218
  Serious: Yes (Death)
  Sender: FDA-Public Use
  Company Number: None

PATIENT
  Age: 26 Year
  Sex: Male
  Weight: 90.7194 kg

DRUGS (1)
  1. MEFLOQUINE [Suspect]
     Indication: MALARIA PROPHYLAXIS
     Dosage: ONCE A WEEK
     Dates: start: 20040301, end: 20040901

REACTIONS (3)
  - COMPLETED SUICIDE [None]
  - DEPRESSION [None]
  - NIGHTMARE [None]
